FAERS Safety Report 11726552 (Version 4)
Quarter: 2016Q1

REPORT INFORMATION
  Report Type: Report from Study
  Country: DE (occurrence: DE)
  Receive Date: 20151112
  Receipt Date: 20160106
  Transmission Date: 20160525
  Serious: Yes (Hospitalization, Other)
  Sender: FDA-Public Use
  Company Number: DE-AMGEN-DEUSP2015117038

PATIENT
  Age: 43 Year
  Sex: Female
  Weight: 71 kg

DRUGS (1)
  1. ETANERCEPT [Suspect]
     Active Substance: ETANERCEPT
     Indication: PSORIASIS
     Dosage: UNK UNK, 2 TIMES/WK
     Route: 058
     Dates: start: 20131209, end: 20151012

REACTIONS (2)
  - Cerebrovascular accident [Recovered/Resolved]
  - Cerebral artery embolism [Recovered/Resolved]
